FAERS Safety Report 24131526 (Version 2)
Quarter: 2024Q3

REPORT INFORMATION
  Report Type: Report from Study
  Country: US (occurrence: US)
  Receive Date: 20240724
  Receipt Date: 20240816
  Transmission Date: 20241016
  Serious: Yes (Hospitalization, Other)
  Sender: ACCORD
  Company Number: US-Accord-436442

PATIENT
  Sex: Female
  Weight: 66.68 kg

DRUGS (4)
  1. CLOZAPINE [Suspect]
     Active Substance: CLOZAPINE
     Indication: Schizoaffective disorder depressive type
     Dosage: 125MG, ORAL, DAILY
     Route: 048
  2. ESCITALOPRAM [Suspect]
     Active Substance: ESCITALOPRAM OXALATE
     Indication: Depression
  3. CLOZAPINE [Suspect]
     Active Substance: CLOZAPINE
     Indication: Schizoaffective disorder depressive type
     Dosage: 25MG, ORAL, DAILY
     Route: 048
  4. CLOZAPINE [Suspect]
     Active Substance: CLOZAPINE
     Indication: Schizoaffective disorder depressive type
     Dosage: 125MG, ORAL, DAILY
     Route: 048

REACTIONS (5)
  - Depression [Unknown]
  - Psychotic disorder [Unknown]
  - Hallucination [Unknown]
  - Condition aggravated [Unknown]
  - Withdrawal syndrome [Unknown]
